FAERS Safety Report 5272062-3 (Version None)
Quarter: 2007Q1

REPORT INFORMATION
  Report Type: 
  Country: None (occurrence: None)
  Receive Date: 20061214
  Receipt Date: 20060321
  Transmission Date: 20070707
  Serious: Yes (Death)
  Sender: FDA-Public Use
  Company Number: 2006041584

PATIENT
  Age: 33 Year
  Sex: Male

DRUGS (2)
  1. BEXTRA [Suspect]
     Indication: ROAD TRAFFIC ACCIDENT
     Dates: start: 20030501
  2. VIOXX [Suspect]
     Indication: ROAD TRAFFIC ACCIDENT
     Dates: start: 20030501

REACTIONS (1)
  - MYOCARDIAL INFARCTION [None]
